FAERS Safety Report 15844233 (Version 2)
Quarter: 2019Q4

REPORT INFORMATION
  Report Type: Report from Study
  Country: US (occurrence: US)
  Receive Date: 20190118
  Receipt Date: 20191202
  Transmission Date: 20200122
  Serious: Yes (Other)
  Sender: FDA-Public Use
  Company Number: US-JAZZ-2018-US-016313

PATIENT
  Sex: Female

DRUGS (35)
  1. ZALEPLON. [Concomitant]
     Active Substance: ZALEPLON
  2. LORYNA [Concomitant]
     Active Substance: DROSPIRENONE\ETHINYL ESTRADIOL
  3. ATIVAN [Concomitant]
     Active Substance: LORAZEPAM
  4. XYREM [Suspect]
     Active Substance: SODIUM OXYBATE
     Dosage: DOSE ADJUSTMENTS
     Route: 048
     Dates: start: 201403, end: 201404
  5. LUNESTA [Concomitant]
     Active Substance: ESZOPICLONE
  6. CLONAZEPAM. [Concomitant]
     Active Substance: CLONAZEPAM
  7. SUMATRIPTAN. [Concomitant]
     Active Substance: SUMATRIPTAN
  8. PRAZOSIN. [Concomitant]
     Active Substance: PRAZOSIN
  9. BELSOMRA [Concomitant]
     Active Substance: SUVOREXANT
  10. METOPROLOL TARTRATE. [Concomitant]
     Active Substance: METOPROLOL TARTRATE
  11. MIRENA [Concomitant]
     Active Substance: LEVONORGESTREL
  12. NASACORT [Concomitant]
     Active Substance: TRIAMCINOLONE ACETONIDE
  13. CITALOPRAM HYDROBROMIDE. [Concomitant]
     Active Substance: CITALOPRAM HYDROBROMIDE
  14. XYREM [Suspect]
     Active Substance: SODIUM OXYBATE
     Indication: NARCOLEPSY
     Dosage: 2.25 G, BID
     Route: 048
     Dates: start: 201403, end: 201403
  15. XYREM [Suspect]
     Active Substance: SODIUM OXYBATE
     Dosage: 4.5 G, BID
     Route: 048
     Dates: start: 201404, end: 201511
  16. ZYRTEC [Concomitant]
     Active Substance: CETIRIZINE HYDROCHLORIDE
  17. VITAMIN B12 [Concomitant]
     Active Substance: CYANOCOBALAMIN
  18. ERGOCALCIFEROL. [Concomitant]
     Active Substance: ERGOCALCIFEROL
  19. DICYCLOVERINE [Concomitant]
     Active Substance: DICYCLOMINE HYDROCHLORIDE
  20. XYREM [Suspect]
     Active Substance: SODIUM OXYBATE
     Dosage: 2.25 G, BID
     Route: 048
     Dates: start: 201807, end: 201808
  21. WELLBUTRIN [Concomitant]
     Active Substance: BUPROPION HYDROCHLORIDE
  22. TOPAMAX [Concomitant]
     Active Substance: TOPIRAMATE
  23. AMOXICILLIN. [Concomitant]
     Active Substance: AMOXICILLIN
  24. DIFLUCAN [Concomitant]
     Active Substance: FLUCONAZOLE
  25. DIAZEPAM. [Concomitant]
     Active Substance: DIAZEPAM
  26. XYREM [Suspect]
     Active Substance: SODIUM OXYBATE
     Dosage: DOSE ADJUSTMENTS
     Route: 048
     Dates: start: 201808, end: 201808
  27. XYREM [Suspect]
     Active Substance: SODIUM OXYBATE
     Dosage: 4.5 G, BID
     Route: 048
     Dates: start: 201808
  28. LO LOESTRIN FE [Concomitant]
     Active Substance: ETHINYL ESTRADIOL\NORETHINDRONE ACETATE
  29. OMEPRAZOLE. [Concomitant]
     Active Substance: OMEPRAZOLE
  30. KEPPRA [Concomitant]
     Active Substance: LEVETIRACETAM
  31. PROZAC [Concomitant]
     Active Substance: FLUOXETINE HYDROCHLORIDE
  32. OXYMETAZOLINE [Concomitant]
     Active Substance: OXYMETAZOLINE
  33. NUVIGIL [Concomitant]
     Active Substance: ARMODAFINIL
  34. GLICLAZIDE [Concomitant]
     Active Substance: GLICLAZIDE
  35. ADDERALL [Concomitant]
     Active Substance: AMPHETAMINE ASPARTATE\AMPHETAMINE SULFATE\DEXTROAMPHETAMINE SACCHARATE\DEXTROAMPHETAMINE SULFATE

REACTIONS (2)
  - Hepatic adenoma [Not Recovered/Not Resolved]
  - Polycystic ovaries [Unknown]
